FAERS Safety Report 15579625 (Version 1)
Quarter: 2018Q4

REPORT INFORMATION
  Report Type: Spontaneous
  Country: US (occurrence: US)
  Receive Date: 20181102
  Receipt Date: 20181102
  Transmission Date: 20190205
  Serious: Yes (Other)
  Sender: FDA-Public Use
  Company Number: US-IMPAX LABORATORIES, INC-2018-IPXL-03245

PATIENT
  Age: 75 Year
  Sex: Male

DRUGS (2)
  1. RYTARY [Suspect]
     Active Substance: CARBIDOPA\LEVODOPA
     Indication: PARKINSON^S DISEASE
     Dosage: 48.75/195 MG, THREE CAPSULES, THREE TIMES DAILY
     Route: 065
     Dates: start: 20180807, end: 2018
  2. RYTARY [Suspect]
     Active Substance: CARBIDOPA\LEVODOPA
     Dosage: 48.75/195 MG, TWO CAPSULES, THREE TIMES DAILY
     Route: 065
     Dates: start: 2018

REACTIONS (10)
  - Diarrhoea [Recovered/Resolved]
  - Urinary tract infection [Recovered/Resolved]
  - Back pain [Unknown]
  - Balance disorder [Unknown]
  - Constipation [Recovered/Resolved]
  - Abnormal behaviour [Unknown]
  - Gait inability [Recovering/Resolving]
  - Confusional state [Recovering/Resolving]
  - Asthenia [Not Recovered/Not Resolved]
  - Fall [Unknown]

NARRATIVE: CASE EVENT DATE: 2018
